FAERS Safety Report 4727688-X (Version None)
Quarter: 2005Q3

REPORT INFORMATION
  Report Type: 
  Country: None (occurrence: None)
  Receive Date: 20050725
  Receipt Date: 20050708
  Transmission Date: 20060218
  Serious: No
  Sender: FDA-Public Use
  Company Number: CART-10415

PATIENT
  Age: 56 Year
  Sex: Male

DRUGS (1)
  1. CARTICEL [Suspect]
     Indication: ARTHROPATHY
     Dosage: 1 NA ONCE IS
     Dates: start: 19971016, end: 19971016

REACTIONS (2)
  - GRAFT DELAMINATION [None]
  - LOOSE BODY IN JOINT [None]
